FAERS Safety Report 5444176-6 (Version None)
Quarter: 2007Q3

REPORT INFORMATION
  Report Type: 
  Country: None (occurrence: None)
  Receive Date: 20070904
  Receipt Date: 20070904
  Transmission Date: 20080115
  Serious: Yes (Life-Threatening, Hospitalization)
  Sender: FDA-Public Use
  Company Number: None

PATIENT
  Age: 65 Year
  Sex: Male
  Weight: 144.5 kg

DRUGS (2)
  1. DEFINITY [Suspect]
     Indication: ECHOCARDIOGRAM
     Dosage: TOTAL 5ML 3MG/2MG 5-10MIN
     Route: 042
     Dates: start: 20070822
  2. SODIUM CHLORIDE [Concomitant]

REACTIONS (2)
  - ANAPHYLACTIC REACTION [None]
  - WHITE BLOOD CELL COUNT INCREASED [None]
